FAERS Safety Report 4536462-9 (Version None)
Quarter: 2004Q4

REPORT INFORMATION
  Report Type: 
  Country: None (occurrence: None)
  Receive Date: 20041223
  Receipt Date: 20031113
  Transmission Date: 20050328
  Serious: No
  Sender: FDA-Public Use
  Company Number: US-GLAXOSMITHKLINE-A0439650A

PATIENT
  Age: 82 Year
  Sex: Female

DRUGS (3)
  1. FLOVENT [Suspect]
     Indication: ASTHMA
     Dosage: 1PUFF TWICE PER DAY
     Route: 055
     Dates: start: 20030601
  2. BLOOD PRESSURE MEDICATION [Concomitant]
  3. OSTEOPOROSIS MEDICATION [Concomitant]

REACTIONS (1)
  - DRUG INEFFECTIVE [None]
